FAERS Safety Report 9183895 (Version 1)
Quarter: 2013Q1

REPORT INFORMATION
  Report Type: Spontaneous
  Country: US (occurrence: US)
  Receive Date: 20130322
  Receipt Date: 20130322
  Transmission Date: 20140127
  Serious: Yes (Death)
  Sender: FDA-Public Use
  Company Number: US-BRISTOL-MYERS SQUIBB COMPANY-16659534

PATIENT
  Age: 58 Year
  Sex: Male

DRUGS (13)
  1. ERBITUX [Suspect]
     Indication: COLON CANCER METASTATIC
     Dosage: NO OF DOSE:01?THERAPY .09MAY11 1140-1150 20 MG, 1200-1400 780 MG.
     Route: 042
     Dates: start: 20110509
  2. PERCOCET [Concomitant]
     Indication: PAIN
     Dosage: 10/325 1-2 HR Q4H
  3. OXYCONTIN [Concomitant]
     Indication: PAIN
  4. TYLENOL [Concomitant]
  5. BENADRYL [Concomitant]
  6. DULCOLAX [Concomitant]
  7. ZOLOFT [Concomitant]
  8. MELATONIN [Concomitant]
  9. VITAMIN C [Concomitant]
  10. MAGNESIUM [Concomitant]
  11. TURMERIC [Concomitant]
  12. COLACE [Concomitant]
  13. CLARITIN [Concomitant]

REACTIONS (1)
  - Malignant neoplasm progression [Fatal]
